FAERS Safety Report 24273974 (Version 1)
Quarter: 2024Q3

REPORT INFORMATION
  Report Type: Spontaneous
  Country: CA (occurrence: CA)
  Receive Date: 20240902
  Receipt Date: 20240902
  Transmission Date: 20241017
  Serious: Yes (Hospitalization)
  Sender: BAXTER
  Company Number: CA-BAXTER-2024BAX023804

PATIENT
  Age: 38 Year
  Sex: Male

DRUGS (3)
  1. CEFTRIAXONE [Suspect]
     Active Substance: CEFTRIAXONE\CEFTRIAXONE SODIUM
     Indication: Bacterial infection
     Dosage: UNSPECIFIED DOSE AND FREQUENCY, THERAPY DURATION: 3.0 DAYS
     Route: 042
  2. AMOXICILLIN\CLAVULANATE POTASSIUM [Suspect]
     Active Substance: AMOXICILLIN\CLAVULANATE POTASSIUM
     Indication: Bacterial infection
     Dosage: UNSPECIFIED DOSE AND FREQUENCY, THERAPY DURATION: 0.0
     Route: 048
  3. KEFLEX [Suspect]
     Active Substance: CEPHALEXIN
     Indication: Bacterial infection
     Dosage: UNSPECIFIED DOSE AND FREQUENCY, DOSAGE FORM: NOT SPECIFIED, THERAPY DURATION: 0.0
     Route: 048

REACTIONS (1)
  - Therapy non-responder [Unknown]
